FAERS Safety Report 8414121-X (Version None)
Quarter: 2012Q2

REPORT INFORMATION
  Report Type: 
  Country: None (occurrence: None)
  Receive Date: 20120605
  Receipt Date: 20120528
  Transmission Date: 20120825
  Serious: Yes (Other)
  Sender: FDA-Public Use
  Company Number: NZ-B.I. PHARMACEUTICALS,INC./RIDGEFIELD-2012-AU-00765AU

PATIENT
  Sex: Male
  Weight: 69.9 kg

DRUGS (7)
  1. FELODIPINE [Concomitant]
     Dosage: 2.5 MG
     Dates: start: 20090716
  2. CITALOPRAM HYDROBROMIDE [Concomitant]
     Dosage: 20 MG
  3. METOPROLOL TARTRATE [Concomitant]
     Dosage: 190 MG
     Dates: start: 20090716
  4. DOXAZOSIN [Concomitant]
     Dosage: 4 MG
     Dates: start: 20110721
  5. CILAZAPRIL [Concomitant]
     Dosage: 2.5 MG
     Dates: start: 20090716
  6. CITALOPRAM HYDROBROMIDE [Concomitant]
     Dosage: 40 MG
     Dates: start: 20090721
  7. PRADAXA [Suspect]
     Indication: ATRIAL FIBRILLATION
     Dosage: 220 MG
     Dates: start: 20110705, end: 20111208

REACTIONS (2)
  - HAEMATURIA [None]
  - PROSTATE CANCER RECURRENT [None]
